FAERS Safety Report 10483036 (Version 3)
Quarter: 2014Q4

REPORT INFORMATION
  Report Type: Spontaneous
  Country: IT (occurrence: IT)
  Receive Date: 20140930
  Receipt Date: 20141113
  Transmission Date: 20150528
  Serious: Yes (Other)
  Sender: FDA-Public Use
  Company Number: IT-009507513-1409ITA012550

PATIENT
  Age: 65 Year
  Sex: Female

DRUGS (8)
  1. REBETOL [Suspect]
     Active Substance: RIBAVIRIN
     Indication: CHRONIC HEPATITIS C
     Dosage: 1200 MG DAILY
     Route: 048
     Dates: start: 20111210, end: 201203
  2. REBETOL [Suspect]
     Active Substance: RIBAVIRIN
     Dosage: 800 MG DAILY
     Route: 048
     Dates: start: 201203, end: 20121109
  3. CARDIOASPIRIN [Concomitant]
     Active Substance: ASPIRIN
     Indication: THROMBOSIS PROPHYLAXIS
     Dosage: 100 MG, UNK
     Route: 048
     Dates: start: 2008
  4. ARVENUM [Concomitant]
     Indication: PERIPHERAL VENOUS DISEASE
     Dosage: 1 DOSE UNIT, UNK
     Route: 048
     Dates: start: 2006
  5. LANSOX [Concomitant]
     Active Substance: LANSOPRAZOLE
     Indication: PROPHYLAXIS AGAINST GASTROINTESTINAL ULCER
     Dosage: 30 MG, UNK
     Route: 048
     Dates: start: 2008
  6. PEGINTRON [Suspect]
     Active Substance: PEGINTERFERON ALFA-2B
     Indication: CHRONIC HEPATITIS C
     Dosage: 120 MICROGRAM WEEKLY
     Route: 058
     Dates: start: 20111210, end: 20121109
  7. ACTONEL [Concomitant]
     Active Substance: RISEDRONATE SODIUM
     Indication: OSTEOPOROSIS
     Dosage: 1 DOSE UNIT, UNK
     Route: 048
     Dates: start: 2008
  8. DEURSIL [Concomitant]
     Active Substance: URSODIOL
     Indication: DYSPEPSIA
     Dosage: 300 MG, UNK
     Route: 048
     Dates: start: 2008

REACTIONS (3)
  - Asthenia [Recovered/Resolved]
  - Neutropenia [Recovered/Resolved]
  - Anaemia [Recovered/Resolved]

NARRATIVE: CASE EVENT DATE: 20120303
